FAERS Safety Report 24030673 (Version 1)
Quarter: 2024Q2

REPORT INFORMATION
  Report Type: Spontaneous
  Country: CN (occurrence: CN)
  Receive Date: 20240628
  Receipt Date: 20240628
  Transmission Date: 20240715
  Serious: Yes (Life-Threatening)
  Sender: FDA-Public Use
  Company Number: CN-MLMSERVICE-20240614-PI100653-00082-1

PATIENT
  Age: 49 Year
  Sex: Female

DRUGS (5)
  1. PACLITAXEL [Suspect]
     Active Substance: PACLITAXEL
     Indication: Ovarian cancer stage IV
     Dosage: 175 MG/M^2 ON DAY 1, EVERY 21 DAYS
     Dates: start: 201911, end: 201912
  2. PACLITAXEL [Suspect]
     Active Substance: PACLITAXEL
     Indication: Metastasis
  3. CARBOPLATIN [Suspect]
     Active Substance: CARBOPLATIN
     Indication: Metastasis
     Dosage: AREA UNDER THE CURVE (AUC)=5) ON DAY 1, EVERY 21 DAYS
     Dates: start: 201911, end: 201912
  4. CARBOPLATIN [Suspect]
     Active Substance: CARBOPLATIN
     Indication: Ovarian cancer stage IV
  5. CARBOPLATIN [Suspect]
     Active Substance: CARBOPLATIN
     Indication: Ovarian epithelial cancer

REACTIONS (1)
  - Myelosuppression [Unknown]
